FAERS Safety Report 9467059 (Version 1)
Quarter: 2013Q3

REPORT INFORMATION
  Report Type: Spontaneous
  Country: DE (occurrence: DE)
  Receive Date: 20130820
  Receipt Date: 20130820
  Transmission Date: 20140515
  Serious: Yes (Hospitalization, Other)
  Sender: FDA-Public Use
  Company Number: DE-GLAXOSMITHKLINE-D0080791A

PATIENT
  Age: 0 Day
  Sex: Male
  Weight: 2.5 kg

DRUGS (1)
  1. LAMOTRIGINE [Suspect]
     Indication: EPILEPSY
     Route: 064
     Dates: start: 20090116, end: 20090921

REACTIONS (7)
  - Apnoea neonatal [Recovered/Resolved]
  - Neonatal tachypnoea [Recovered/Resolved]
  - Arrhythmia [Recovering/Resolving]
  - Supraventricular extrasystoles [Recovering/Resolving]
  - Foetal monitoring abnormal [Unknown]
  - Premature baby [Unknown]
  - Foetal exposure during pregnancy [Unknown]
